FAERS Safety Report 10661818 (Version 1)
Quarter: 2014Q4

REPORT INFORMATION
  Report Type: Spontaneous
  Country: US (occurrence: None)
  Receive Date: 20141217
  Receipt Date: 20141217
  Transmission Date: 20150529
  Serious: Yes (Hospitalization)
  Sender: FDA-Public Use
  Company Number: None

PATIENT
  Age: 43 Year
  Sex: Male

DRUGS (9)
  1. LOSARTAN [Concomitant]
     Active Substance: LOSARTAN
  2. AMLODIPINE [Concomitant]
     Active Substance: AMLODIPINE BESYLATE
  3. NAFCILLIN [Suspect]
     Active Substance: NAFCILLIN\NAFCILLIN SODIUM
     Indication: ARTHRITIS BACTERIAL
     Route: 042
     Dates: start: 20141013, end: 20141017
  4. ENOXAPARIN [Concomitant]
     Active Substance: ENOXAPARIN
  5. VANCOMYCIN [Concomitant]
     Active Substance: VANCOMYCIN
  6. HYDROMORPHONE [Concomitant]
     Active Substance: HYDROMORPHONE
  7. INSULIN GLARGINE [Concomitant]
     Active Substance: INSULIN GLARGINE
  8. CEFAZOLIN [Concomitant]
     Active Substance: CEFAZOLIN
  9. HYDRALAZINE [Concomitant]
     Active Substance: HYDRALAZINE HYDROCHLORIDE

REACTIONS (4)
  - Pyrexia [None]
  - Leukocytosis [None]
  - Tachycardia [None]
  - Blood creatinine increased [None]

NARRATIVE: CASE EVENT DATE: 20141017
